FAERS Safety Report 9860245 (Version 2)
Quarter: 2014Q1

REPORT INFORMATION
  Report Type: Spontaneous
  Country: US (occurrence: US)
  Receive Date: 20140201
  Receipt Date: 20140304
  Transmission Date: 20141002
  Serious: No
  Sender: FDA-Public Use
  Company Number: US-B.I. PHARMACEUTICALS,INC./RIDGEFIELD-2014-BI-03074BP

PATIENT
  Age: 72 Year
  Sex: Male

DRUGS (3)
  1. PRADAXA [Suspect]
     Indication: PRODUCT USED FOR UNKNOWN INDICATION
     Dosage: 300 MG
     Route: 048
     Dates: start: 201401
  2. LIPITOR [Concomitant]
     Indication: BLOOD CHOLESTEROL INCREASED
     Dosage: 40 MG
     Route: 048
  3. DIOVAN [Concomitant]
     Indication: HYPERTENSION
     Dosage: 80 MG
     Route: 048

REACTIONS (1)
  - Foreign body [Not Recovered/Not Resolved]
